FAERS Safety Report 8608175-5 (Version None)
Quarter: 2012Q3

REPORT INFORMATION
  Report Type: 
  Country: None (occurrence: None)
  Receive Date: 20120821
  Receipt Date: 20120430
  Transmission Date: 20120928
  Serious: No
  Sender: FDA-Public Use
  Company Number: US-TEVA-333617USA

PATIENT
  Sex: Male

DRUGS (1)
  1. FLUCONAZOLE [Suspect]
     Indication: FUNGAL INFECTION
     Route: 048

REACTIONS (3)
  - DRUG INEFFECTIVE [None]
  - SINUS HEADACHE [None]
  - HEADACHE [None]
